FAERS Safety Report 13905739 (Version 1)
Quarter: 2017Q3

REPORT INFORMATION
  Report Type: Spontaneous
  Country: US (occurrence: US)
  Receive Date: 20170825
  Receipt Date: 20170825
  Transmission Date: 20171127
  Serious: No
  Sender: FDA-Public Use
  Company Number: US-009507513-1708USA010495

PATIENT
  Sex: Female

DRUGS (2)
  1. REMERON [Suspect]
     Active Substance: MIRTAZAPINE
     Dosage: 15 MG PER DAY
     Route: 048
     Dates: start: 20170124, end: 201708
  2. REMERON [Suspect]
     Active Substance: MIRTAZAPINE
     Dosage: 7.5 MG, ONCE OR TWICE A WEEK
     Route: 048
     Dates: start: 201708

REACTIONS (3)
  - Depersonalisation/derealisation disorder [Unknown]
  - Vomiting [Unknown]
  - Nausea [Unknown]
